FAERS Safety Report 5693099-6 (Version None)
Quarter: 2008Q2

REPORT INFORMATION
  Report Type: 
  Country: None (occurrence: None)
  Receive Date: 20080402
  Receipt Date: 20080402
  Transmission Date: 20081010
  Serious: Yes (Hospitalization)
  Sender: FDA-Public Use
  Company Number: None

PATIENT
  Sex: Female
  Weight: 63.5036 kg

DRUGS (1)
  1. JANUVIA [Suspect]
     Indication: DIABETES MELLITUS
     Dosage: 100MG 1 DAILY
     Dates: start: 20080303, end: 20080316

REACTIONS (2)
  - CAUSTIC INJURY [None]
  - TOXIC EPIDERMAL NECROLYSIS [None]
